FAERS Safety Report 15183826 (Version 2)
Quarter: 2018Q3

REPORT INFORMATION
  Report Type: Spontaneous
  Country: BR (occurrence: BR)
  Receive Date: 20180723
  Receipt Date: 20180803
  Transmission Date: 20181010
  Serious: No
  Sender: FDA-Public Use
  Company Number: BR-ABBVIE-18K-020-2423714-00

PATIENT
  Sex: Female
  Weight: 70 kg

DRUGS (4)
  1. CYCLOSPORINE. [Concomitant]
     Active Substance: CYCLOSPORINE
     Indication: PRODUCT USED FOR UNKNOWN INDICATION
     Dosage: DOSE 200
  2. PREDNISONE. [Concomitant]
     Active Substance: PREDNISONE
     Indication: PRODUCT USED FOR UNKNOWN INDICATION
     Dosage: DOSE 20
  3. HUMIRA [Suspect]
     Active Substance: ADALIMUMAB
     Indication: PSORIASIS
     Route: 058
     Dates: start: 2016
  4. HUMIRA [Suspect]
     Active Substance: ADALIMUMAB
     Route: 058

REACTIONS (1)
  - Paraneoplastic rash [Recovered/Resolved]
